FAERS Safety Report 20664862 (Version 8)
Quarter: 2025Q3

REPORT INFORMATION
  Report Type: Report from Study
  Country: CA (occurrence: CA)
  Receive Date: 20220401
  Receipt Date: 20250814
  Transmission Date: 20251020
  Serious: Yes (Hospitalization, Other)
  Sender: HLS THERAPEUTICS
  Company Number: CA-HLS-202107892

PATIENT

DRUGS (2)
  1. CLOZARIL [Suspect]
     Active Substance: CLOZAPINE
     Indication: Product used for unknown indication
     Route: 048
  2. CLOZARIL [Suspect]
     Active Substance: CLOZAPINE
     Indication: Product used for unknown indication
     Route: 048
     Dates: start: 20210616, end: 20210629

REACTIONS (7)
  - Colon cancer [Unknown]
  - C-reactive protein increased [Recovering/Resolving]
  - Troponin increased [Recovering/Resolving]
  - Arthralgia [Unknown]
  - Myocarditis [Unknown]
  - Arthralgia [Unknown]
  - Malaise [Unknown]
